FAERS Safety Report 16065568 (Version 7)
Quarter: 2023Q4

REPORT INFORMATION
  Report Type: Spontaneous
  Country: ZA (occurrence: ZA)
  Receive Date: 20190313
  Receipt Date: 20231115
  Transmission Date: 20240110
  Serious: Yes (Death, Hospitalization, Other)
  Sender: FDA-Public Use
  Company Number: ZA-PFIZER INC-2019093532

PATIENT
  Age: 78 Year
  Sex: Male
  Weight: 68 kg

DRUGS (1)
  1. ENBREL [Suspect]
     Active Substance: ETANERCEPT
     Indication: Rheumatoid arthritis
     Dosage: 50 MILLIGRAM, QWK
     Route: 058
     Dates: start: 20180823

REACTIONS (9)
  - Death [Fatal]
  - Blister [Unknown]
  - Fatigue [Unknown]
  - Condition aggravated [Recovering/Resolving]
  - Road traffic accident [Recovering/Resolving]
  - Upper limb fracture [Recovering/Resolving]
  - Foot fracture [Recovering/Resolving]
  - Ankle operation [Unknown]
  - Nausea [Unknown]

NARRATIVE: CASE EVENT DATE: 20190211
